FAERS Safety Report 9316517 (Version 1)
Quarter: 2013Q2

REPORT INFORMATION
  Report Type: Spontaneous
  Country: US (occurrence: US)
  Receive Date: 20130530
  Receipt Date: 20130530
  Transmission Date: 20140414
  Serious: No
  Sender: FDA-Public Use
  Company Number: US-PFIZER INC-2013164242

PATIENT
  Age: 43 Year
  Sex: Male
  Weight: 126.53 kg

DRUGS (3)
  1. NEURONTIN [Suspect]
     Indication: DIABETIC NEUROPATHY
     Dosage: 1600 MG (2 X 800 MG), 2X/DAY (MORNING AND NIGHT)
     Dates: start: 2009
  2. NEURONTIN [Suspect]
     Dosage: 800 MG, 2X/DAY
     Dates: start: 20130501, end: 201305
  3. NEURONTIN [Suspect]
     Dosage: 800 MG, DAILY
     Dates: start: 201305, end: 20130523

REACTIONS (4)
  - Intentional drug misuse [Recovered/Resolved]
  - Pain [Not Recovered/Not Resolved]
  - Withdrawal syndrome [Unknown]
  - Mood swings [Unknown]
